FAERS Safety Report 5618867-8 (Version None)
Quarter: 2008Q1

REPORT INFORMATION
  Report Type: 
  Country: None (occurrence: None)
  Receive Date: 20080207
  Receipt Date: 20080130
  Transmission Date: 20080703
  Serious: Yes (Death, Hospitalization)
  Sender: FDA-Public Use
  Company Number: ES-PFIZER INC-2007073186

PATIENT
  Sex: Male
  Weight: 65 kg

DRUGS (2)
  1. SU-011,248 [Suspect]
     Indication: TRANSITIONAL CELL CARCINOMA
     Route: 048
     Dates: start: 20070627, end: 20070824
  2. PHENYTOIN [Concomitant]

REACTIONS (4)
  - CONVULSION [None]
  - DISEASE PROGRESSION [None]
  - TRANSITIONAL CELL CARCINOMA [None]
  - URINARY TRACT INFECTION [None]
